FAERS Safety Report 5581921-3 (Version None)
Quarter: 2008Q1

REPORT INFORMATION
  Report Type: 
  Country: None (occurrence: None)
  Receive Date: 20080104
  Receipt Date: 20071225
  Transmission Date: 20080703
  Serious: Yes (Death, Other)
  Sender: FDA-Public Use
  Company Number: US-JNJFOC-20070406518

PATIENT
  Sex: Male
  Weight: 73.03 kg

DRUGS (10)
  1. FENTANYL TRANSDERMAL SYSTEM [Suspect]
     Route: 062
  2. FENTANYL TRANSDERMAL SYSTEM [Suspect]
     Indication: BACK PAIN
     Route: 062
  3. CARISOPRODOL [Concomitant]
  4. CELEBREX [Concomitant]
  5. EFFEXOR XR [Concomitant]
  6. ESTRATEST H.S. [Concomitant]
  7. GABAPENTIN [Concomitant]
  8. OXYCONTIN [Concomitant]
  9. WARFARIN SODIUM [Concomitant]
  10. AMBIEN [Concomitant]

REACTIONS (2)
  - DEVICE FAILURE [None]
  - NARCOTIC INTOXICATION [None]
